FAERS Safety Report 11537944 (Version 1)
Quarter: 2015Q3

REPORT INFORMATION
  Report Type: Spontaneous
  Country: JP (occurrence: JP)
  Receive Date: 20150922
  Receipt Date: 20150922
  Transmission Date: 20151125
  Serious: Yes (Death)
  Sender: FDA-Public Use
  Company Number: JP-MALLINCKRODT-T201504416

PATIENT
  Age: 67 Year
  Sex: Male

DRUGS (23)
  1. XYLOCAINE [Concomitant]
     Active Substance: LIDOCAINE HYDROCHLORIDE
     Dosage: 100 MG
     Route: 051
     Dates: start: 20150124, end: 20150129
  2. AMLODIPINE [Concomitant]
     Active Substance: AMLODIPINE BESYLATE
     Dosage: 5 MG
     Route: 048
     Dates: end: 20150130
  3. NEXIUM [Concomitant]
     Active Substance: ESOMEPRAZOLE MAGNESIUM
     Dosage: 10 MG
     Route: 048
     Dates: end: 20150201
  4. DIART [Concomitant]
     Active Substance: AZOSEMIDE
     Dosage: 30 MG
     Route: 048
     Dates: start: 20150124, end: 20150201
  5. FENTOS [Concomitant]
     Active Substance: FENTANYL
  6. OXYCONTIN [Concomitant]
     Active Substance: OXYCODONE HYDROCHLORIDE
  7. METHADONE [Suspect]
     Active Substance: METHADONE HYDROCHLORIDE
     Indication: CANCER PAIN
     Dosage: 10 MG (30 MG DAILY DOSE)
     Route: 048
     Dates: start: 20150122, end: 20150128
  8. CERCINE [Concomitant]
     Active Substance: DIAZEPAM
     Dosage: 5 MG
     Route: 051
     Dates: start: 20150122, end: 20150202
  9. ESTRACYT [Concomitant]
     Active Substance: ESTRAMUSTINE PHOSPHATE SODIUM
     Dosage: 313.4 MG
     Route: 048
     Dates: end: 20150130
  10. HARNAL OCAS [Concomitant]
     Active Substance: TAMSULOSIN HYDROCHLORIDE
     Dosage: 0.2 MG
     Route: 048
     Dates: end: 20150130
  11. BETAHISTINE MESILATE [Concomitant]
     Active Substance: BETAHISTINE MESILATE
     Dosage: 18 MG
     Route: 048
     Dates: end: 20150129
  12. FENTANYL. [Concomitant]
     Active Substance: FENTANYL
     Dosage: 0.1 MG, PRN
     Route: 051
     Dates: start: 20150122
  13. TEPRENONE [Concomitant]
     Active Substance: TEPRENONE
     Dosage: 100 MG
     Route: 048
     Dates: end: 20150130
  14. RINDERON V [Concomitant]
     Active Substance: BETAMETHASONE VALERATE
     Dosage: 1 MG
     Route: 048
     Dates: start: 20150122, end: 20150129
  15. FENTANYL. [Concomitant]
     Active Substance: FENTANYL
     Dosage: 2 MG
     Route: 051
     Dates: start: 20150122, end: 20150203
  16. MAGMITT [Concomitant]
     Active Substance: MAGNESIUM OXIDE
     Dosage: 1500 MG
     Route: 048
     Dates: end: 20150201
  17. PRIMPERAN [Concomitant]
     Active Substance: METOCLOPRAMIDE HYDROCHLORIDE
     Dosage: 15 MG
     Route: 048
     Dates: end: 20150629
  18. REFLEX [Concomitant]
     Active Substance: MIRTAZAPINE
     Dosage: 15 MG
     Route: 048
     Dates: start: 20150122, end: 20150201
  19. BISOPROLOL [Concomitant]
     Active Substance: BISOPROLOL
     Dosage: 2 MG
     Route: 062
     Dates: start: 20150129, end: 20150202
  20. LYRICA [Concomitant]
     Active Substance: PREGABALIN
     Dosage: 300 MG
     Route: 048
     Dates: end: 20150201
  21. CELECOX [Concomitant]
     Active Substance: CELECOXIB
     Dosage: 400 MG
     Route: 048
     Dates: end: 20150201
  22. METHADONE [Suspect]
     Active Substance: METHADONE HYDROCHLORIDE
     Dosage: 20 MG (40 MG DAILY DOSE)
     Route: 048
     Dates: start: 20150129, end: 20150201
  23. WARFARIN POTASSIUM [Concomitant]
     Active Substance: WARFARIN POTASSIUM
     Dosage: 2.5 MG
     Route: 048
     Dates: end: 20150201

REACTIONS (1)
  - Prostate cancer [Fatal]

NARRATIVE: CASE EVENT DATE: 20150203
